FAERS Safety Report 7681200-4 (Version None)
Quarter: 2011Q3

REPORT INFORMATION
  Report Type: 
  Country: None (occurrence: None)
  Receive Date: 20110812
  Receipt Date: 20110802
  Transmission Date: 20111222
  Serious: Yes (Hospitalization)
  Sender: FDA-Public Use
  Company Number: FR-ELI_LILLY_AND_COMPANY-FR201105003165

PATIENT
  Age: 67 Year
  Sex: Male
  Weight: 80 kg

DRUGS (11)
  1. AVANDAMET [Concomitant]
     Indication: TYPE 2 DIABETES MELLITUS
  2. AMARYL [Concomitant]
     Dosage: 3 MG, BID
  3. BYETTA [Suspect]
     Indication: TYPE 2 DIABETES MELLITUS
     Dosage: 5 UG, UNKNOWN
     Dates: start: 20080901
  4. BYETTA [Suspect]
     Dosage: 10 UG, BID
     Dates: end: 20110506
  5. BYETTA [Suspect]
     Dosage: UNK
     Dates: start: 20110519
  6. GLIMEPIRIDE [Concomitant]
     Indication: TYPE 2 DIABETES MELLITUS
     Dosage: 3 MG, BID
     Route: 048
  7. PLAVIX [Concomitant]
     Indication: ARTERIAL DISORDER
     Dosage: 75 MG, QD
  8. METFORMIN HCL [Concomitant]
     Indication: TYPE 2 DIABETES MELLITUS
     Dosage: 1000 MG, QD
  9. METFORMIN HCL [Concomitant]
     Dosage: 1000 MG, BID
  10. RAMIPRIL [Concomitant]
     Indication: TYPE 2 DIABETES MELLITUS
     Dosage: 10 MG, QD
  11. AMARYL [Concomitant]
     Indication: TYPE 2 DIABETES MELLITUS
     Dosage: 4 MG, UNK
     Dates: start: 20050301

REACTIONS (2)
  - SMALL INTESTINAL OBSTRUCTION [None]
  - GLYCOSYLATED HAEMOGLOBIN INCREASED [None]
